FAERS Safety Report 23842759 (Version 1)
Quarter: 2024Q2

REPORT INFORMATION
  Report Type: Report from Study
  Country: US (occurrence: US)
  Receive Date: 20240510
  Receipt Date: 20240510
  Transmission Date: 20240716
  Serious: No
  Sender: FDA-Public Use
  Company Number: US-BIOVITRUM-2024-US-001253

PATIENT
  Age: 59 Year
  Sex: Male

DRUGS (1)
  1. KINERET [Suspect]
     Active Substance: ANAKINRA
     Indication: Rheumatoid arthritis
     Dosage: DAILY
     Route: 058
     Dates: start: 20231228

REACTIONS (4)
  - Intentional dose omission [Unknown]
  - Post procedural infection [Unknown]
  - Sinusitis [Unknown]
  - Drug ineffective [Unknown]
